FAERS Safety Report 5291984-0 (Version None)
Quarter: 2007Q2

REPORT INFORMATION
  Report Type: 
  Country: None (occurrence: None)
  Receive Date: 20070406
  Receipt Date: 20070406
  Transmission Date: 20071010
  Serious: No
  Sender: FDA-Public Use
  Company Number: None

PATIENT
  Age: 32 Year
  Sex: Female
  Weight: 87.9978 kg

DRUGS (15)
  1. AMBIEN CR [Suspect]
     Indication: BIPOLAR DISORDER
     Dates: start: 20050101, end: 20070210
  2. AMBIEN CR [Suspect]
     Indication: INSOMNIA
     Dates: start: 20050101, end: 20070210
  3. BEER [Concomitant]
  4. ADVAIR DISKUS 100/50 [Concomitant]
  5. HYDROCORTISOL [Concomitant]
  6. NEXIUM [Concomitant]
  7. KLONOPIN [Concomitant]
  8. XOPENOX INHALAIR [Concomitant]
  9. SINGULAIR [Concomitant]
  10. EFFEXOR XR [Concomitant]
  11. LYRICA [Concomitant]
  12. LAMICTAL [Concomitant]
  13. LASIX [Concomitant]
  14. KADIAN [Concomitant]
  15. PLAQUENEL [Concomitant]

REACTIONS (4)
  - ABNORMAL SLEEP-RELATED EVENT [None]
  - ALCOHOL USE [None]
  - AMNESIA [None]
  - ROAD TRAFFIC ACCIDENT [None]
